FAERS Safety Report 24262279 (Version 1)
Quarter: 2024Q3

REPORT INFORMATION
  Report Type: Spontaneous
  Country: DE (occurrence: DE)
  Receive Date: 20240829
  Receipt Date: 20240829
  Transmission Date: 20241017
  Serious: Yes (Hospitalization, Other)
  Sender: JOHNSON AND JOHNSON
  Company Number: DE-JNJFOC-20240852392

PATIENT
  Age: 52 Year
  Sex: Female

DRUGS (9)
  1. DARZALEX [Suspect]
     Active Substance: DARATUMUMAB
     Indication: Transplant rejection
     Dosage: INFUSION WAS STARTED AT A RATE OF 25 ML/H AND WAS SUBSEQUENTLY INCREASED BY 25 ML/H EVERY 30 MIN UP
     Route: 042
  2. PREDNISOLONE [Concomitant]
     Active Substance: PREDNISOLONE
     Indication: Premedication
     Route: 050
  3. CIMETIDINE [Concomitant]
     Active Substance: CIMETIDINE
     Indication: Premedication
  4. ONDANSETRON [Concomitant]
     Active Substance: ONDANSETRON
  5. ACETAMINOPHEN [Concomitant]
     Active Substance: ACETAMINOPHEN
  6. MONTELUKAST [Concomitant]
     Active Substance: MONTELUKAST SODIUM
  7. TACROLIMUS [Concomitant]
     Active Substance: TACROLIMUS
     Route: 050
  8. METHYLPREDNISOLONE [Concomitant]
     Active Substance: METHYLPREDNISOLONE
     Dosage: 4 MG/DAY
     Route: 050
  9. MYCOPHENOLATE MOFETIL [Concomitant]
     Active Substance: MYCOPHENOLATE MOFETIL
     Route: 050

REACTIONS (8)
  - Hypogammaglobulinaemia [Unknown]
  - Leukopenia [Unknown]
  - COVID-19 [Unknown]
  - Urinary tract infection [Unknown]
  - Nausea [Unknown]
  - Vomiting [Unknown]
  - Infusion related reaction [Unknown]
  - Off label use [Unknown]
